FAERS Safety Report 9286506 (Version 1)
Quarter: 2013Q2

REPORT INFORMATION
  Report Type: Spontaneous
  Country: US (occurrence: None)
  Receive Date: 20130510
  Receipt Date: 20130510
  Transmission Date: 20140414
  Serious: Yes (Hospitalization)
  Sender: FDA-Public Use
  Company Number: None

PATIENT
  Age: 74 Year
  Sex: Male
  Weight: 124.5 kg

DRUGS (6)
  1. COUMADIN [Suspect]
     Indication: ATRIAL FIBRILLATION
     Dosage: 10MG / 7.5MG MWTHSS/TF PO
  2. ASA [Suspect]
     Indication: ATRIAL FIBRILLATION
     Route: 048
  3. LASIX [Concomitant]
  4. TIKOSYN [Concomitant]
  5. SYNTHROID [Concomitant]
  6. DULERA [Concomitant]

REACTIONS (5)
  - Haemoptysis [None]
  - Dyspnoea [None]
  - Contusion [None]
  - Lung infiltration [None]
  - Bronchial disorder [None]
